FAERS Safety Report 25243682 (Version 1)
Quarter: 2025Q2

REPORT INFORMATION
  Report Type: Other
  Country: JP (occurrence: JP)
  Receive Date: 20250428
  Receipt Date: 20250428
  Transmission Date: 20250717
  Serious: Yes (Hospitalization, Other)
  Sender: OMNIVIUM PHARMACEUTICALS LLC
  Company Number: JP-Omnivium Pharmaceuticals LLC-2175711

PATIENT
  Age: 78 Year
  Sex: Male

DRUGS (6)
  1. ISONIAZID [Suspect]
     Active Substance: ISONIAZID
     Indication: Bacillus Calmette-Guerin infection
  2. ETHAMBUTOL [Suspect]
     Active Substance: ETHAMBUTOL HYDROCHLORIDE
  3. BCG Tokyo strain [Concomitant]
  4. STREPTOMYCIN [Suspect]
     Active Substance: STREPTOMYCIN SULFATE
  5. LEVOFLOXACIN [Suspect]
     Active Substance: LEVOFLOXACIN
  6. RIFAMPIN [Suspect]
     Active Substance: RIFAMPIN

REACTIONS (2)
  - Pancytopenia [Unknown]
  - Product use in unapproved indication [Unknown]
